FAERS Safety Report 9408276 (Version 1)
Quarter: 2013Q3

REPORT INFORMATION
  Report Type: Spontaneous
  Country: GB (occurrence: GB)
  Receive Date: 20130718
  Receipt Date: 20130718
  Transmission Date: 20140515
  Serious: Yes (Other)
  Sender: FDA-Public Use
  Company Number: GB-NAPPMUNDI-GBR-2013-0014870

PATIENT
  Sex: Female

DRUGS (2)
  1. BUTRANS TRANSDERMAL PATCH [Suspect]
     Indication: PRODUCT USED FOR UNKNOWN INDICATION
     Dosage: 30 MG, (4 PATCHES, 2 OF 10 MCG/H + 2 OF 15 MCG/HR)
     Route: 062
  2. BUTRANS TRANSDERMAL PATCH [Suspect]
     Dosage: 15 (2 PATCHES OF 10 + 5) MCG, Q1H
     Route: 062

REACTIONS (2)
  - Coma [Unknown]
  - Incorrect dose administered [Unknown]
